FAERS Safety Report 17063199 (Version 1)
Quarter: 2019Q4

REPORT INFORMATION
  Report Type: Spontaneous
  Country: US (occurrence: US)
  Receive Date: 20191121
  Receipt Date: 20191121
  Transmission Date: 20200122
  Serious: Yes (Other)
  Sender: FDA-Public Use
  Company Number: None

PATIENT
  Age: 81 Year
  Sex: Male
  Weight: 108 kg

DRUGS (7)
  1. ASPIRIN. [Concomitant]
     Active Substance: ASPIRIN
     Dates: start: 20190906
  2. METOLAZONE. [Concomitant]
     Active Substance: METOLAZONE
     Dates: start: 20190411
  3. OLANZAPINE. [Concomitant]
     Active Substance: OLANZAPINE
     Dates: start: 20180906
  4. ELIQUIS [Suspect]
     Active Substance: APIXABAN
     Indication: DEEP VEIN THROMBOSIS
     Route: 048
     Dates: start: 20191114, end: 20191119
  5. CARVEDIOLOL [Concomitant]
     Dates: start: 20180908
  6. ATORVASTATIN [Concomitant]
     Active Substance: ATORVASTATIN
     Dates: start: 20180906
  7. DIVALPROEX [Concomitant]
     Active Substance: DIVALPROEX SODIUM
     Dates: start: 20181101

REACTIONS (2)
  - Agitation [None]
  - Aggression [None]

NARRATIVE: CASE EVENT DATE: 20191114
